FAERS Safety Report 18357316 (Version 2)
Quarter: 2020Q4

REPORT INFORMATION
  Report Type: Spontaneous
  Country: RU (occurrence: RU)
  Receive Date: 20201007
  Receipt Date: 20201016
  Transmission Date: 20210114
  Serious: Yes (Other)
  Sender: FDA-Public Use
  Company Number: RU-UCBSA-2020038791

PATIENT

DRUGS (1)
  1. KEPPRA [Suspect]
     Active Substance: LEVETIRACETAM
     Indication: EPILEPSY
     Dosage: UNK

REACTIONS (12)
  - Nervous system disorder [Recovering/Resolving]
  - Hypersensitivity [Recovering/Resolving]
  - Seizure [Unknown]
  - Headache [Recovering/Resolving]
  - Behaviour disorder [Recovering/Resolving]
  - Cognitive disorder [Recovering/Resolving]
  - Drug ineffective [Unknown]
  - Depression [Recovering/Resolving]
  - Coordination abnormal [Recovering/Resolving]
  - Gastrointestinal disorder [Recovering/Resolving]
  - Dyspepsia [Recovering/Resolving]
  - Visual impairment [Recovering/Resolving]
